FAERS Safety Report 9105645 (Version 6)
Quarter: 2014Q2

REPORT INFORMATION
  Report Type: Spontaneous
  Country: US (occurrence: US)
  Receive Date: 20130220
  Receipt Date: 20140603
  Transmission Date: 20141212
  Serious: Yes (Hospitalization, Other)
  Sender: FDA-Public Use
  Company Number: US-009507513-1302USA008077

PATIENT
  Sex: Female
  Weight: 70.75 kg

DRUGS (4)
  1. FOSAMAX [Suspect]
     Indication: OSTEOPOROSIS
     Dosage: 10 MG, QD
     Route: 048
  2. FOSAMAX [Suspect]
     Dosage: 70 MG, QW
     Route: 048
     Dates: start: 20010319
  3. ALENDRONATE SODIUM [Suspect]
     Indication: OSTEOPOROSIS
  4. SYNTHROID [Concomitant]
     Dosage: 88 MICROGRAM, QAM
     Route: 048
     Dates: start: 1970

REACTIONS (46)
  - Osteoarthritis [Unknown]
  - Nausea [Recovering/Resolving]
  - Pain in extremity [Unknown]
  - Femur fracture [Recovered/Resolved with Sequelae]
  - Closed fracture manipulation [Unknown]
  - Forearm fracture [Recovered/Resolved]
  - Open reduction of fracture [Unknown]
  - Forearm fracture [Recovered/Resolved]
  - Open reduction of fracture [Unknown]
  - Femur fracture [Unknown]
  - Intramedullary rod insertion [Unknown]
  - Thyroidectomy [Unknown]
  - Rotator cuff repair [Unknown]
  - Fracture [Unknown]
  - Fall [Unknown]
  - Tooth extraction [Unknown]
  - Low turnover osteopathy [Unknown]
  - Osteopenia [Unknown]
  - Hyperlipidaemia [Unknown]
  - Cataract [Unknown]
  - Osteoarthritis [Not Recovered/Not Resolved]
  - Thyroid disorder [Unknown]
  - Cataract operation [Unknown]
  - Hysterectomy [Unknown]
  - Tonsillectomy [Unknown]
  - Bladder neck suspension [Unknown]
  - Debridement [Unknown]
  - Arthroscopy [Unknown]
  - Osteoporosis [Unknown]
  - Median nerve injury [Unknown]
  - Joint stiffness [Not Recovered/Not Resolved]
  - Muscular weakness [Unknown]
  - Hypoaesthesia [Not Recovered/Not Resolved]
  - Patellofemoral pain syndrome [Unknown]
  - Skin abrasion [Unknown]
  - Ulna fracture [Unknown]
  - Hypothyroidism [Unknown]
  - Bladder operation [Unknown]
  - QRS axis abnormal [Unknown]
  - Migraine [Unknown]
  - Helicobacter infection [Unknown]
  - Urinary incontinence surgery [Unknown]
  - Breast operation [Unknown]
  - Metabolic function test abnormal [Unknown]
  - Full blood count abnormal [Unknown]
  - Sinus bradycardia [Unknown]
